FAERS Safety Report 8236178-1 (Version None)
Quarter: 2012Q1

REPORT INFORMATION
  Report Type: 
  Country: None (occurrence: None)
  Receive Date: 20120327
  Receipt Date: 20120315
  Transmission Date: 20120608
  Serious: No
  Sender: FDA-Public Use
  Company Number: US-BIOGENIDEC-2012BI009847

PATIENT
  Sex: Male

DRUGS (3)
  1. TYSABRI [Suspect]
     Indication: MULTIPLE SCLEROSIS
     Route: 042
     Dates: start: 20080421, end: 20100720
  2. AVONEX [Concomitant]
     Indication: MULTIPLE SCLEROSIS
     Route: 030
     Dates: start: 19990401
  3. TYSABRI [Suspect]
     Route: 030
     Dates: start: 20120301

REACTIONS (5)
  - PAIN [None]
  - MUSCLE SPASMS [None]
  - AMNESIA [None]
  - PARAESTHESIA [None]
  - PSORIASIS [None]
